FAERS Safety Report 8412405-2 (Version None)
Quarter: 2012Q2

REPORT INFORMATION
  Report Type: 
  Country: None (occurrence: None)
  Receive Date: 20120605
  Receipt Date: 20120528
  Transmission Date: 20120825
  Serious: Yes (Other)
  Sender: FDA-Public Use
  Company Number: BR-ELI_LILLY_AND_COMPANY-BR201205009513

PATIENT
  Sex: Male
  Weight: 80 kg

DRUGS (1)
  1. CIALIS [Suspect]
     Dosage: 5 MG, UNKNOWN
     Route: 065

REACTIONS (5)
  - GENITAL BURNING SENSATION [None]
  - TESTICULAR SWELLING [None]
  - PRIAPISM [None]
  - PENILE SWELLING [None]
  - ERECTION INCREASED [None]
